FAERS Safety Report 19199197 (Version 4)
Quarter: 2021Q3

REPORT INFORMATION
  Report Type: Report from Study
  Country: None (occurrence: US)
  Receive Date: 20210429
  Receipt Date: 20210715
  Transmission Date: 20211014
  Serious: Yes (Hospitalization)
  Sender: FDA-Public Use
  Company Number: US-ABBVIE-21K-163-3875627-00

PATIENT
  Age: 48 Year
  Sex: Female
  Weight: 111.23 kg

DRUGS (3)
  1. HUMIRA [Suspect]
     Active Substance: ADALIMUMAB
     Indication: PSORIATIC ARTHROPATHY
  2. HUMIRA [Suspect]
     Active Substance: ADALIMUMAB
     Indication: RHEUMATOID ARTHRITIS
     Route: 058
     Dates: start: 2008, end: 2012
  3. HUMIRA [Suspect]
     Active Substance: ADALIMUMAB
     Indication: RHEUMATOID ARTHRITIS
     Route: 058
     Dates: end: 2014

REACTIONS (10)
  - Pneumothorax [Recovering/Resolving]
  - Mobility decreased [Recovering/Resolving]
  - Myocardial infarction [Recovering/Resolving]
  - Posterior reversible encephalopathy syndrome [Unknown]
  - Immunodeficiency [Unknown]
  - Cognitive disorder [Unknown]
  - Pneumonia [Recovering/Resolving]
  - Blindness transient [Recovering/Resolving]
  - Speech disorder [Recovering/Resolving]
  - Posterior reversible encephalopathy syndrome [Not Recovered/Not Resolved]

NARRATIVE: CASE EVENT DATE: 2014
